FAERS Safety Report 5927860-7 (Version None)
Quarter: 2008Q4

REPORT INFORMATION
  Report Type: 
  Country: None (occurrence: None)
  Receive Date: 20081023
  Receipt Date: 20081014
  Transmission Date: 20090506
  Serious: Yes (Hospitalization)
  Sender: FDA-Public Use
  Company Number: ES-AMGEN-US314095

PATIENT
  Age: 26 Year
  Sex: Female

DRUGS (1)
  1. ENBREL [Suspect]
     Indication: RHEUMATOID ARTHRITIS
     Dosage: 25 MG PER ML
     Route: 058
     Dates: start: 20070731, end: 20071210

REACTIONS (4)
  - ARTHRALGIA [None]
  - MALAISE [None]
  - POLYARTHRITIS [None]
  - PYREXIA [None]
